FAERS Safety Report 6566675-6 (Version None)
Quarter: 2010Q1

REPORT INFORMATION
  Report Type: 
  Country: None (occurrence: None)
  Receive Date: 20100127
  Receipt Date: 20100114
  Transmission Date: 20100710
  Serious: Yes (Hospitalization)
  Sender: FDA-Public Use
  Company Number: 2010SP000143

PATIENT
  Sex: Female

DRUGS (3)
  1. XOPENEX [Suspect]
     Dosage: INHALATION
     Route: 055
     Dates: start: 20100109
  2. CON MEDS [Concomitant]
  3. PREV MEDS [Concomitant]

REACTIONS (2)
  - SWOLLEN TONGUE [None]
  - THROAT IRRITATION [None]
